FAERS Safety Report 6402890-X (Version None)
Quarter: 2009Q4

REPORT INFORMATION
  Report Type: 
  Country: None (occurrence: None)
  Receive Date: 20091014
  Receipt Date: 20091014
  Transmission Date: 20100525
  Serious: Yes (Hospitalization)
  Sender: FDA-Public Use
  Company Number: None

PATIENT
  Sex: Female
  Weight: 57.7 kg

DRUGS (3)
  1. CARBOPLATIN [Suspect]
     Dosage: 776 MG
  2. ERBITUX [Suspect]
     Dosage: 2735 MG
  3. TAXOL [Suspect]
     Dosage: 375 MG

REACTIONS (5)
  - CONSTIPATION [None]
  - DEHYDRATION [None]
  - DIARRHOEA [None]
  - DIZZINESS [None]
  - HAEMATOCHEZIA [None]
